FAERS Safety Report 4524484-3 (Version None)
Quarter: 2004Q4

REPORT INFORMATION
  Report Type: 
  Country: None (occurrence: None)
  Receive Date: 20041117
  Receipt Date: 20031020
  Transmission Date: 20050328
  Serious: Yes (Other)
  Sender: FDA-Public Use
  Company Number: US-JNJFOC-20031004468

PATIENT
  Age: 13 Year
  Sex: Male

DRUGS (4)
  1. LEVAQUIN [Suspect]
     Dosage: ORAL
     Route: 048
     Dates: start: 20031006, end: 20031010
  2. CYCLOSPORINE [Concomitant]
  3. CEFTIN [Concomitant]
  4. AZATHIOPRINE [Concomitant]

REACTIONS (1)
  - POLYARTHRITIS [None]
